FAERS Safety Report 19447540 (Version 1)
Quarter: 2021Q2

REPORT INFORMATION
  Report Type: Spontaneous
  Country: US (occurrence: US)
  Receive Date: 20210621
  Receipt Date: 20210621
  Transmission Date: 20210717
  Serious: No
  Sender: FDA-Public Use
  Company Number: None

PATIENT
  Age: 21 Year
  Sex: Female
  Weight: 49.5 kg

DRUGS (2)
  1. DEXTROAMPHETAMINE SULFATE TABLETS, USP 10 MG NDC 13107?036?01 [Suspect]
     Active Substance: DEXTROAMPHETAMINE SULFATE
     Indication: ATTENTION DEFICIT HYPERACTIVITY DISORDER
     Dosage: ?          QUANTITY:1 TABLET(S);?
     Route: 048
     Dates: start: 20210521, end: 20210617
  2. DEXTROAMPHETAMINE SULFATE TABLETS, USP 10 MG NDC 13107?036?01 [Suspect]
     Active Substance: DEXTROAMPHETAMINE SULFATE
     Indication: HYPERSOMNIA
     Dosage: ?          QUANTITY:1 TABLET(S);?
     Route: 048
     Dates: start: 20210521, end: 20210617

REACTIONS (5)
  - Muscle spasms [None]
  - Dysmenorrhoea [None]
  - Hypoaesthesia [None]
  - Impaired work ability [None]
  - Cerebrovascular accident [None]

NARRATIVE: CASE EVENT DATE: 20210617
